FAERS Safety Report 9059918 (Version 2)
Quarter: 2013Q1

REPORT INFORMATION
  Report Type: Spontaneous
  Country: BR (occurrence: BR)
  Receive Date: 20130212
  Receipt Date: 20130320
  Transmission Date: 20140127
  Serious: Yes (Death, Hospitalization)
  Sender: FDA-Public Use
  Company Number: PHHY2013BR012688

PATIENT
  Sex: Female
  Weight: 40 kg

DRUGS (4)
  1. ACLASTA [Suspect]
     Indication: OSTEOPOROSIS
     Dosage: 5 MG, UNK
     Route: 042
  2. OMEPRAZOLE [Concomitant]
  3. MELOXICAM [Concomitant]
  4. TECNOMET//METHOTREXATE [Concomitant]

REACTIONS (2)
  - Death [Fatal]
  - Sciatica [Not Recovered/Not Resolved]
